FAERS Safety Report 20525575 (Version 1)
Quarter: 2022Q1

REPORT INFORMATION
  Report Type: Report from Study
  Country: US (occurrence: US)
  Receive Date: 20220228
  Receipt Date: 20220228
  Transmission Date: 20220424
  Serious: No
  Sender: FDA-Public Use
  Company Number: US-ONCOPEPPR-00909

PATIENT
  Sex: Male

DRUGS (1)
  1. PEPAXTO [Suspect]
     Active Substance: MELPHALAN FLUFENAMIDE
     Indication: Product used for unknown indication

REACTIONS (1)
  - Drug intolerance [Unknown]
